FAERS Safety Report 11636085 (Version 1)
Quarter: 2015Q4

REPORT INFORMATION
  Report Type: Spontaneous
  Country: FR (occurrence: FR)
  Receive Date: 20151016
  Receipt Date: 20151016
  Transmission Date: 20160304
  Serious: Yes (Other)
  Sender: FDA-Public Use
  Company Number: FR-JAZZ-2015-FR-015739

PATIENT

DRUGS (14)
  1. VINCRISTINE TEVA [Concomitant]
     Active Substance: VINCRISTINE
     Indication: T-CELL TYPE ACUTE LEUKAEMIA
     Dosage: 1.5 MG/M2, UNK
     Route: 042
     Dates: start: 20150403, end: 20150424
  2. METHOTREXATE [Concomitant]
     Active Substance: METHOTREXATE
     Indication: T-CELL TYPE ACUTE LEUKAEMIA
     Dosage: 12 MG, UNK
     Route: 037
     Dates: start: 20150407
  3. UROMITEXAN [Concomitant]
     Active Substance: MESNA
     Indication: T-CELL TYPE ACUTE LEUKAEMIA
     Dosage: 700 MG, UNK
     Route: 042
     Dates: start: 20150519, end: 20150616
  4. RISPERDAL [Concomitant]
     Active Substance: RISPERIDONE
     Indication: T-CELL TYPE ACUTE LEUKAEMIA
     Dosage: 2 DF, BID
     Route: 048
  5. PREDNISOLONE. [Concomitant]
     Active Substance: PREDNISOLONE
     Indication: T-CELL TYPE ACUTE LEUKAEMIA
     Dosage: 60 MG/M2, UNK
     Route: 048
     Dates: start: 20150327, end: 20150430
  6. CYTARABINE. [Concomitant]
     Active Substance: CYTARABINE
     Indication: T-CELL TYPE ACUTE LEUKAEMIA
     Dosage: 30 MG, UNK
     Route: 037
     Dates: start: 20150407, end: 20150722
  7. METHYLPREDNISOLONE. [Concomitant]
     Active Substance: METHYLPREDNISOLONE
     Indication: T-CELL TYPE ACUTE LEUKAEMIA
     Dosage: 15.2 MG, UNK
     Route: 037
     Dates: start: 20150407, end: 20150722
  8. ARACYTINE [Concomitant]
     Active Substance: CYTARABINE
     Indication: T-CELL TYPE ACUTE LEUKAEMIA
     Dosage: 150 MG, UNK
     Route: 042
     Dates: start: 20150522, end: 20150702
  9. DAUNORUBICINE [Concomitant]
     Active Substance: DAUNORUBICIN
     Indication: T-CELL TYPE ACUTE LEUKAEMIA
     Dosage: 30 MG/M2, UNK
     Route: 042
  10. TEGRETOL [Concomitant]
     Active Substance: CARBAMAZEPINE
     Indication: T-CELL TYPE ACUTE LEUKAEMIA
     Dosage: 210 G, BID
     Route: 048
  11. KIDROLASE [Concomitant]
     Active Substance: ASPARAGINASE
     Indication: T-CELL TYPE ACUTE LEUKAEMIA
     Dosage: 20000 IU, UNK
     Route: 042
     Dates: start: 20150407, end: 20150430
  12. PURINETHOL [Concomitant]
     Active Substance: MERCAPTOPURINE
     Indication: T-CELL TYPE ACUTE LEUKAEMIA
     Dosage: 120 MG, UNK
     Route: 048
     Dates: start: 20150519, end: 20150616
  13. ERWINASE [Suspect]
     Active Substance: ASPARAGINASE ERWINIA CHRYSANTHEMI
     Indication: T-CELL TYPE ACUTE LEUKAEMIA
     Dosage: 10000 IU, UNK
     Route: 042
     Dates: start: 20150604
  14. ENDOXAN [Concomitant]
     Active Substance: CYCLOPHOSPHAMIDE
     Indication: T-CELL TYPE ACUTE LEUKAEMIA
     Dosage: 2000 UNK, UNK
     Route: 042
     Dates: start: 20150519, end: 20150616

REACTIONS (1)
  - Ejection fraction decreased [Not Recovered/Not Resolved]

NARRATIVE: CASE EVENT DATE: 20150706
